FAERS Safety Report 14274783 (Version 2)
Quarter: 2018Q1

REPORT INFORMATION
  Report Type: Spontaneous
  Country: JP (occurrence: JP)
  Receive Date: 20171212
  Receipt Date: 20180131
  Transmission Date: 20180508
  Serious: Yes (Hospitalization)
  Sender: FDA-Public Use
  Company Number: JP-BAYER-2017-234715

PATIENT
  Age: 60 Year
  Sex: Male

DRUGS (2)
  1. STIVARGA [Suspect]
     Active Substance: REGORAFENIB
     Indication: RECTOSIGMOID CANCER METASTATIC
     Dosage: DAILY DOSE 120 MG
     Dates: start: 201510
  2. STIVARGA [Suspect]
     Active Substance: REGORAFENIB
     Indication: RECTOSIGMOID CANCER METASTATIC
     Dosage: DAILY DOSE 80 MG

REACTIONS (6)
  - Inflammatory marker increased [None]
  - Malaise [None]
  - Pyrexia [None]
  - Back pain [None]
  - Pain in extremity [None]
  - Malaise [None]

NARRATIVE: CASE EVENT DATE: 2015
